FAERS Safety Report 23266260 (Version 1)
Quarter: 2023Q4

REPORT INFORMATION
  Report Type: Spontaneous
  Country: US (occurrence: US)
  Receive Date: 20231206
  Receipt Date: 20231206
  Transmission Date: 20240109
  Serious: Yes (Hospitalization)
  Sender: FDA-Public Use
  Company Number: US-STRIDES ARCOLAB LIMITED-2023SP005678

PATIENT
  Age: 77 Year
  Sex: Female

DRUGS (28)
  1. LIDOCAINE [Suspect]
     Active Substance: LIDOCAINE
     Indication: Neuralgia
     Dosage: UNK, OINTMENT
     Route: 061
  2. LIDOCAINE [Suspect]
     Active Substance: LIDOCAINE
     Indication: Post herpetic neuralgia
  3. CITALOPRAM [Suspect]
     Active Substance: CITALOPRAM HYDROBROMIDE
     Indication: Neuralgia
     Dosage: UNK
     Route: 065
  4. CITALOPRAM [Suspect]
     Active Substance: CITALOPRAM HYDROBROMIDE
     Indication: Post herpetic neuralgia
  5. LEVETIRACETAM [Suspect]
     Active Substance: LEVETIRACETAM
     Indication: Neuralgia
     Dosage: UNK
     Route: 065
  6. LEVETIRACETAM [Suspect]
     Active Substance: LEVETIRACETAM
     Indication: Post herpetic neuralgia
  7. TRAMADOL [Suspect]
     Active Substance: TRAMADOL\TRAMADOL HYDROCHLORIDE
     Indication: Neuralgia
     Dosage: UNK
     Route: 065
  8. TRAMADOL [Suspect]
     Active Substance: TRAMADOL\TRAMADOL HYDROCHLORIDE
     Indication: Post herpetic neuralgia
  9. GABAPENTIN [Suspect]
     Active Substance: GABAPENTIN
     Indication: Neuralgia
     Dosage: UNK, RECEIVED HIGH DOSES
     Route: 065
  10. GABAPENTIN [Suspect]
     Active Substance: GABAPENTIN
     Indication: Post herpetic neuralgia
  11. VALACYCLOVIR HYDROCHLORIDE [Suspect]
     Active Substance: VALACYCLOVIR HYDROCHLORIDE
     Indication: Neuralgia
     Dosage: UNK
     Route: 065
  12. VALACYCLOVIR HYDROCHLORIDE [Suspect]
     Active Substance: VALACYCLOVIR HYDROCHLORIDE
     Indication: Post herpetic neuralgia
  13. TEMAZEPAM [Suspect]
     Active Substance: TEMAZEPAM
     Indication: Neuralgia
     Dosage: UNK
     Route: 065
  14. TEMAZEPAM [Suspect]
     Active Substance: TEMAZEPAM
     Indication: Post herpetic neuralgia
  15. SERTRALINE [Suspect]
     Active Substance: SERTRALINE HYDROCHLORIDE
     Indication: Neuralgia
     Dosage: UNK
     Route: 065
  16. SERTRALINE [Suspect]
     Active Substance: SERTRALINE HYDROCHLORIDE
     Indication: Post herpetic neuralgia
  17. DULOXETINE [Suspect]
     Active Substance: DULOXETINE
     Indication: Neuralgia
     Dosage: UNK
     Route: 065
  18. DULOXETINE [Suspect]
     Active Substance: DULOXETINE
     Indication: Post herpetic neuralgia
  19. DESIPRAMINE [Suspect]
     Active Substance: DESIPRAMINE
     Indication: Neuralgia
     Dosage: UNK
     Route: 065
  20. DESIPRAMINE [Suspect]
     Active Substance: DESIPRAMINE
     Indication: Post herpetic neuralgia
  21. LAMOTRIGINE [Suspect]
     Active Substance: LAMOTRIGINE
     Indication: Neuralgia
     Dosage: UNK
     Route: 065
  22. LAMOTRIGINE [Suspect]
     Active Substance: LAMOTRIGINE
     Indication: Post herpetic neuralgia
  23. ACETAMINOPHEN\PROPOXYPHENE NAPSYLATE [Suspect]
     Active Substance: ACETAMINOPHEN\PROPOXYPHENE NAPSYLATE
     Indication: Neuralgia
     Dosage: UNK
     Route: 065
  24. ACETAMINOPHEN\PROPOXYPHENE NAPSYLATE [Suspect]
     Active Substance: ACETAMINOPHEN\PROPOXYPHENE NAPSYLATE
     Indication: Post herpetic neuralgia
  25. TAPENTADOL [Suspect]
     Active Substance: TAPENTADOL
     Indication: Neuralgia
     Dosage: UNK
     Route: 065
  26. TAPENTADOL [Suspect]
     Active Substance: TAPENTADOL
     Indication: Post herpetic neuralgia
  27. METHADONE [Suspect]
     Active Substance: METHADONE HYDROCHLORIDE
     Indication: Neuralgia
     Dosage: UNK
     Route: 065
  28. METHADONE [Suspect]
     Active Substance: METHADONE HYDROCHLORIDE
     Indication: Post herpetic neuralgia

REACTIONS (3)
  - Treatment failure [Unknown]
  - Therapy partial responder [Unknown]
  - Off label use [Unknown]
